FAERS Safety Report 9458900 (Version 1)
Quarter: 2013Q3

REPORT INFORMATION
  Report Type: Spontaneous
  Country: GB (occurrence: GB)
  Receive Date: 20130814
  Receipt Date: 20130814
  Transmission Date: 20140515
  Serious: Yes (Disabling)
  Sender: FDA-Public Use
  Company Number: GB-GLAXOSMITHKLINE-B0914434A

PATIENT
  Age: 65 Year
  Sex: Female
  Weight: 55 kg

DRUGS (9)
  1. AVAMYS [Suspect]
     Dates: start: 20130730
  2. SERETIDE [Concomitant]
     Dates: start: 20130415
  3. LORATADINE [Concomitant]
     Dates: start: 20130415
  4. PREDNISOLONE [Concomitant]
     Dates: start: 20130502, end: 20130507
  5. OMEPRAZOLE [Concomitant]
     Dates: start: 20130502, end: 20130516
  6. FLUTICASONE PROPIONATE [Concomitant]
     Dates: start: 20130502, end: 20130503
  7. FLUTICASONE FUROATE [Concomitant]
     Dates: start: 20130502, end: 20130725
  8. FLUTICASONE PROPIONATE [Concomitant]
     Dates: start: 20130610, end: 20130624
  9. PREDNISOLONE [Concomitant]
     Dates: start: 20130625, end: 20130626

REACTIONS (1)
  - Somnolence [Recovered/Resolved]
